FAERS Safety Report 26111239 (Version 2)
Quarter: 2025Q4

REPORT INFORMATION
  Report Type: Spontaneous
  Country: EU (occurrence: EU)
  Receive Date: 20251202
  Receipt Date: 20251210
  Transmission Date: 20260119
  Serious: Yes (Other)
  Sender: AUROBINDO
  Company Number: EU-MLMSERVICE-20251114-PI713344-00232-2

PATIENT
  Age: 10 Year
  Sex: Female

DRUGS (2)
  1. MYCOPHENOLATE MOFETIL [Suspect]
     Active Substance: MYCOPHENOLATE MOFETIL
     Indication: STING-associated vasculopathy with onset in infancy
     Dosage: UNK
     Route: 065
  2. RUXOLITINIB [Suspect]
     Active Substance: RUXOLITINIB
     Indication: STING-associated vasculopathy with onset in infancy
     Dosage: UNK
     Route: 065

REACTIONS (4)
  - Lymphadenitis [Unknown]
  - Atypical mycobacterial infection [Unknown]
  - Atypical mycobacterial lymphadenitis [Unknown]
  - Product use in unapproved indication [Unknown]
